FAERS Safety Report 8922846 (Version 1)
Quarter: 2012Q4

REPORT INFORMATION
  Report Type: Spontaneous
  Country: ES (occurrence: None)
  Receive Date: 20121109
  Receipt Date: 20121109
  Transmission Date: 20130627
  Serious: Yes (Hospitalization)
  Sender: FDA-Public Use
  Company Number: 2012S100081

PATIENT
  Age: 72 Year
  Sex: Male

DRUGS (12)
  1. CUBICIN [Suspect]
     Route: 042
     Dates: start: 20110809, end: 20110816
  2. ALLOPURINOL [Concomitant]
  3. ARANESP [Concomitant]
  4. CALCIUM [Concomitant]
  5. ARDURAN NEO [Concomitant]
  6. CARVEDILOL [Concomitant]
  7. CLEXANE [Concomitant]
  8. DACORTIN [Concomitant]
  9. ITRACONAZOLE [Concomitant]
  10. PROGRAF [Concomitant]
  11. ROCALTROL [Concomitant]
  12. TARDYFERON /01675201/ [Concomitant]

REACTIONS (2)
  - Asthenia [None]
  - Blood creatine phosphokinase increased [None]
